FAERS Safety Report 4809721-X (Version None)
Quarter: 2005Q4

REPORT INFORMATION
  Report Type: 
  Country: None (occurrence: None)
  Receive Date: 20051024
  Receipt Date: 20051011
  Transmission Date: 20060501
  Serious: Yes (Hospitalization, Disabling, Other)
  Sender: FDA-Public Use
  Company Number: HQWYE036714OCT05

PATIENT
  Age: 56 Year
  Sex: Male

DRUGS (7)
  1. RAPAMUNE [Suspect]
     Indication: PROPHYLAXIS AGAINST TRANSPLANT REJECTION
     Dosage: 4 MG 1X PER 1 DAY, ORAL
     Route: 048
     Dates: start: 20050418, end: 20051007
  2. MYCOPHENOLATE MOFETIL (MYCOPHENOLATE MOFETIL, ) [Suspect]
     Indication: IMMUNOSUPPRESSANT DRUG THERAPY
  3. PREDNISONE [Concomitant]
  4. VALCYTE [Concomitant]
  5. NPH INSULIN [Concomitant]
  6. CARDURA [Concomitant]
  7. METOPROLOL TARTRATE [Concomitant]

REACTIONS (6)
  - ASTHENIA [None]
  - DIABETES MELLITUS INADEQUATE CONTROL [None]
  - DIARRHOEA [None]
  - FAILURE TO THRIVE [None]
  - IMMUNOSUPPRESSANT DRUG LEVEL INCREASED [None]
  - WEIGHT DECREASED [None]
